FAERS Safety Report 7165975 (Version 4)
Quarter: 2012Q4

REPORT INFORMATION
  Report Type: 
  Country: CA (occurrence: CA)
  Receive Date: 20091103
  Receipt Date: 20121123
  Transmission Date: 20130627
  Serious: Yes (Other)
  Sender: FDA-Public Use
  Company Number: PHHY2009CA17606

PATIENT
  Sex: Male

DRUGS (4)
  1. EXJADE [Suspect]
     Indication: MYELODYSPLASTIC SYNDROME
     Dosage: 2500 mg
     Route: 048
     Dates: start: 20090113
  2. EXJADE [Suspect]
     Dosage: 200 mg
     Route: 048
     Dates: start: 200902, end: 200905
  3. EXJADE [Suspect]
     Dosage: 1000 mg, QD
     Route: 048
     Dates: end: 20091022
  4. EXJADE [Suspect]
     Dosage: 2000 mg, QD

REACTIONS (9)
  - Visual impairment [Unknown]
  - Abnormal sensation in eye [Unknown]
  - Head discomfort [Unknown]
  - Bone pain [Unknown]
  - Myalgia [Unknown]
  - Asthenia [Unknown]
  - Dizziness [Unknown]
  - Malaise [Unknown]
  - Headache [Unknown]
